FAERS Safety Report 8770659 (Version 2)
Quarter: 2015Q2

REPORT INFORMATION
  Report Type: Report from Study
  Country: US (occurrence: US)
  Receive Date: 20120907
  Receipt Date: 20150408
  Transmission Date: 20150821
  Serious: Yes (Death, Other)
  Sender: FDA-Public Use
  Company Number: US-ROCHE-1118187

PATIENT
  Age: 51 Year
  Sex: Male

DRUGS (16)
  1. ACTIVASE [Suspect]
     Active Substance: ALTEPLASE
     Indication: MYOCARDIAL INFARCTION
     Route: 065
  2. TRIDIL [Concomitant]
     Active Substance: NITROGLYCERIN
  3. LASIX [Concomitant]
     Active Substance: FUROSEMIDE
     Route: 042
  4. TISSUE PLASMINOGEN ACTIVATOR [Concomitant]
     Active Substance: ALTEPLASE
  5. DOBUTREX [Concomitant]
     Active Substance: DOBUTAMINE HYDROCHLORIDE
     Dosage: APPROX 10 MICS.
     Route: 065
  6. LANOXIN [Concomitant]
     Active Substance: DIGOXIN
     Route: 042
  7. ZANTAC [Concomitant]
     Active Substance: RANITIDINE HYDROCHLORIDE
     Route: 042
  8. TIMENTIN (UNITED STATES) [Concomitant]
     Route: 065
  9. MORPHINE SULFATE. [Concomitant]
     Active Substance: MORPHINE SULFATE
  10. HEPARIN [Concomitant]
     Active Substance: HEPARIN SODIUM
  11. THEOPHYLLIN [Concomitant]
     Active Substance: THEOPHYLLINE ANHYDROUS
  12. CAPOTEN (UNITED STATES) [Concomitant]
     Route: 065
  13. INOCOR [Concomitant]
     Active Substance: INAMRINONE LACTATE
  14. BABY ASPIRIN [Concomitant]
     Active Substance: ASPIRIN
  15. LIDOCAINE. [Concomitant]
     Active Substance: LIDOCAINE
     Route: 065
  16. NITROGLYCERIN. [Concomitant]
     Active Substance: NITROGLYCERIN
     Route: 065

REACTIONS (5)
  - Cardiogenic shock [Unknown]
  - Death [Fatal]
  - Pulmonary oedema [Unknown]
  - Respiratory failure [Unknown]
  - Cardiac failure congestive [Unknown]

NARRATIVE: CASE EVENT DATE: 19890706
